FAERS Safety Report 23463743 (Version 2)
Quarter: 2024Q2

REPORT INFORMATION
  Report Type: Spontaneous
  Country: US (occurrence: US)
  Receive Date: 20240201
  Receipt Date: 20240508
  Transmission Date: 20240716
  Serious: No
  Sender: FDA-Public Use
  Company Number: US-SA-SAC20240124000799

PATIENT
  Age: 12 Year
  Sex: Female

DRUGS (3)
  1. DUPIXENT [Suspect]
     Active Substance: DUPILUMAB
     Indication: Dermatitis atopic
     Dosage: 200 MG, QOW
     Route: 058
  2. FLOVENT [Concomitant]
     Active Substance: FLUTICASONE PROPIONATE
     Dosage: DAILY
  3. ALBUTEROL [Concomitant]
     Active Substance: ALBUTEROL
     Dosage: ONLY FOR AS NEEDED USE

REACTIONS (2)
  - Limb discomfort [Unknown]
  - Dry skin [Recovered/Resolved]

NARRATIVE: CASE EVENT DATE: 20240401
